FAERS Safety Report 9292299 (Version 1)
Quarter: 2013Q2

REPORT INFORMATION
  Report Type: Report from Study
  Country: BR (occurrence: BR)
  Receive Date: 20130516
  Receipt Date: 20130516
  Transmission Date: 20140414
  Serious: Yes (Life-Threatening, Hospitalization)
  Sender: FDA-Public Use
  Company Number: PHHY2013BR048246

PATIENT
  Age: 86 Year
  Sex: Male

DRUGS (4)
  1. DIOVAN [Suspect]
     Dosage: 80 MG, QD
     Dates: end: 201303
  2. DIOVAN [Suspect]
     Dosage: 160 MG, QD
     Dates: start: 20130314
  3. DIOVAN [Suspect]
     Dosage: 320 UNK, UNK
  4. NEBILET [Suspect]
     Dosage: UNK UKN, UNK

REACTIONS (7)
  - Feeling abnormal [Recovered/Resolved]
  - Eye injury [Recovered/Resolved]
  - Eye haemorrhage [Recovered/Resolved]
  - Asthma [Recovered/Resolved]
  - Dyspnoea [Recovered/Resolved]
  - Emphysema [Recovered/Resolved]
  - Blood pressure fluctuation [Recovered/Resolved]
